FAERS Safety Report 11240109 (Version 2)
Quarter: 2015Q3

REPORT INFORMATION
  Report Type: Spontaneous
  Country: CH (occurrence: CH)
  Receive Date: 20150706
  Receipt Date: 20150707
  Transmission Date: 20151125
  Serious: Yes (Death, Hospitalization)
  Sender: FDA-Public Use
  Company Number: CH-ELI_LILLY_AND_COMPANY-CH201506010778

PATIENT
  Age: 65 Year
  Sex: Male

DRUGS (2)
  1. GEMCITABINE HYDROCHLORIDE. [Suspect]
     Active Substance: GEMCITABINE HYDROCHLORIDE
     Indication: LEIOMYOSARCOMA METASTATIC
     Dosage: UNK, UNKNOWN
     Route: 065
  2. DOCETAXEL. [Concomitant]
     Active Substance: DOCETAXEL
     Dosage: UNK, UNKNOWN
     Route: 065

REACTIONS (4)
  - Malignant neoplasm progression [Fatal]
  - Pancytopenia [Unknown]
  - Agranulocytosis [Unknown]
  - Cardiopulmonary failure [Fatal]
